FAERS Safety Report 24447983 (Version 1)
Quarter: 2024Q4

REPORT INFORMATION
  Report Type: Spontaneous
  Country: RO (occurrence: RO)
  Receive Date: 20241016
  Receipt Date: 20241016
  Transmission Date: 20250115
  Serious: Yes (Hospitalization, Other)
  Sender: DR REDDYS
  Company Number: None

PATIENT
  Age: 58 Year
  Sex: Male

DRUGS (5)
  1. DAPTOMYCIN [Suspect]
     Active Substance: DAPTOMYCIN
     Indication: Pneumonia klebsiella
     Dosage: 500 MILLIGRAM (48H)
  2. LEVOFLOXACIN [Suspect]
     Active Substance: LEVOFLOXACIN
     Indication: Urinary tract infection
     Dosage: 750 MG, TID
  3. LINEZOLID [Suspect]
     Active Substance: LINEZOLID
     Indication: Abscess
     Dosage: 600 MG, BID
  4. VANCOMYCIN [Suspect]
     Active Substance: VANCOMYCIN
     Indication: Prophylaxis
     Dosage: 125 MG, BID
     Route: 048
  5. SULFAMETHOXAZOLE\TRIMETHOPRIM [Suspect]
     Active Substance: SULFAMETHOXAZOLE\TRIMETHOPRIM
     Indication: Urinary tract infection
     Dosage: 1 DF (TABLET), ONCE EVERY 12HR

REACTIONS (6)
  - Disease progression [Unknown]
  - Septic encephalopathy [Unknown]
  - Pleural effusion [Unknown]
  - Acute kidney injury [Unknown]
  - Sepsis syndrome [Unknown]
  - Decubitus ulcer [Unknown]
